FAERS Safety Report 22340307 (Version 5)
Quarter: 2023Q2

REPORT INFORMATION
  Report Type: Spontaneous
  Country: US (occurrence: US)
  Receive Date: 20230518
  Receipt Date: 20230630
  Transmission Date: 20230722
  Serious: No
  Sender: FDA-Public Use
  Company Number: US-PFIZER INC-PV202300085314

PATIENT
  Age: 61 Year
  Sex: Female

DRUGS (1)
  1. IBRANCE [Suspect]
     Active Substance: PALBOCICLIB
     Dosage: UNK

REACTIONS (7)
  - Fatigue [Unknown]
  - Acne [Unknown]
  - Chest pain [Unknown]
  - Urticaria [Unknown]
  - Headache [Unknown]
  - Pruritus [Not Recovered/Not Resolved]
  - Insomnia [Unknown]
